FAERS Safety Report 4818209-1 (Version None)
Quarter: 2005Q3

REPORT INFORMATION
  Report Type: 
  Country: None (occurrence: None)
  Receive Date: 20050929
  Receipt Date: 20050608
  Transmission Date: 20060218
  Serious: No
  Sender: FDA-Public Use
  Company Number: 05P-163-0302624-00

PATIENT
  Age: 64 Year
  Sex: Female
  Weight: 95.2554 kg

DRUGS (12)
  1. HUMIRA [Suspect]
     Indication: RHEUMATOID ARTHRITIS
     Dosage: 40 MG, 1 IN 1 WK, SUBCUTANEOUS
     Route: 058
     Dates: start: 20050426
  2. PREDNISONE [Concomitant]
  3. HYDROXYCHLOROQUINE PHOSPHATE [Concomitant]
  4. GABAPENTIN [Concomitant]
  5. CYMBALTA [Concomitant]
  6. ATORVASTATIN CALCIUM [Concomitant]
  7. BUPROPION HYDROCHLORIDE [Concomitant]
  8. CELECOXIB [Concomitant]
  9. FYNTEST [Concomitant]
  10. ASPIRIN [Concomitant]
  11. B-KOMPLEX ^LECIVA^ [Concomitant]
  12. KARVEA HCT [Concomitant]

REACTIONS (1)
  - SINUSITIS [None]
